FAERS Safety Report 14275666 (Version 2)
Quarter: 2018Q4

REPORT INFORMATION
  Report Type: Spontaneous
  Country: US (occurrence: US)
  Receive Date: 20171211
  Receipt Date: 20181214
  Transmission Date: 20190204
  Serious: Yes (Other)
  Sender: FDA-Public Use
  Company Number: US-OTSUKA-2017_013609

PATIENT
  Age: 56 Year
  Sex: Female

DRUGS (9)
  1. ABILIFY [Suspect]
     Active Substance: ARIPIPRAZOLE
     Dosage: 20 MG, QD
     Route: 065
  2. ABILIFY [Suspect]
     Active Substance: ARIPIPRAZOLE
     Dosage: UNK
     Route: 065
  3. ABILIFY [Suspect]
     Active Substance: ARIPIPRAZOLE
     Dosage: 5 MG, QD
     Route: 065
  4. ABILIFY [Suspect]
     Active Substance: ARIPIPRAZOLE
     Dosage: 10 MG, QD
     Route: 065
  5. ABILIFY [Suspect]
     Active Substance: ARIPIPRAZOLE
     Dosage: 30 MG, QD
     Route: 065
  6. ARIPIPRAZOLE. [Concomitant]
     Active Substance: ARIPIPRAZOLE
     Indication: PRODUCT USED FOR UNKNOWN INDICATION
     Dosage: UNK
     Route: 065
     Dates: start: 20160111, end: 20160715
  7. ABILIFY [Suspect]
     Active Substance: ARIPIPRAZOLE
     Dosage: 15 MG, QD
     Route: 065
  8. ABILIFY [Suspect]
     Active Substance: ARIPIPRAZOLE
     Indication: MAJOR DEPRESSION
     Dosage: 2 MG, QD
     Route: 065
     Dates: start: 200809
  9. ABILIFY [Suspect]
     Active Substance: ARIPIPRAZOLE
     Dosage: 40 MG, QD
     Route: 065
     Dates: end: 201607

REACTIONS (30)
  - Patient uncooperative [Unknown]
  - Compulsive sexual behaviour [Not Recovered/Not Resolved]
  - Sleep disorder [Unknown]
  - Muscle spasms [Unknown]
  - Gambling disorder [Recovered/Resolved]
  - Carpal tunnel syndrome [Unknown]
  - Tendonitis [Unknown]
  - Tachyphrenia [Unknown]
  - Arthralgia [Unknown]
  - Compulsive shopping [Not Recovered/Not Resolved]
  - Astigmatism [Unknown]
  - Presbyopia [Unknown]
  - Obsessive-compulsive disorder [Not Recovered/Not Resolved]
  - Eating disorder [Not Recovered/Not Resolved]
  - Mood altered [Unknown]
  - Overdose [Unknown]
  - Suicidal ideation [Not Recovered/Not Resolved]
  - Dysphoria [Unknown]
  - Somnolence [Unknown]
  - Crying [Unknown]
  - Frustration tolerance decreased [Unknown]
  - Dizziness [Unknown]
  - Anxiety [Unknown]
  - Suicide attempt [Not Recovered/Not Resolved]
  - Irritability [Unknown]
  - Pain [Unknown]
  - Depressed mood [Unknown]
  - Malaise [Unknown]
  - Impulsive behaviour [Unknown]
  - Economic problem [Unknown]

NARRATIVE: CASE EVENT DATE: 201306
